FAERS Safety Report 14976653 (Version 1)
Quarter: 2018Q2

REPORT INFORMATION
  Report Type: Report from Study
  Country: DE (occurrence: CL)
  Receive Date: 20180605
  Receipt Date: 20180605
  Transmission Date: 20180711
  Serious: Yes (Life-Threatening)
  Sender: FDA-Public Use
  Company Number: DE-ACTELION-A-NJ2018-173427

PATIENT
  Age: 56 Year

DRUGS (1)
  1. VENTAVIS [Suspect]
     Active Substance: ILOPROST
     Indication: PULMONARY HYPERTENSION
     Dosage: 10 MCG/M, (4TIMES PER DAY)
     Route: 055
     Dates: start: 20171229

REACTIONS (3)
  - Pain in jaw [Unknown]
  - Headache [Unknown]
  - Underdose [Unknown]
